FAERS Safety Report 4526085-X (Version None)
Quarter: 2004Q4

REPORT INFORMATION
  Report Type: 
  Country: None (occurrence: None)
  Receive Date: 20041129
  Receipt Date: 20040806
  Transmission Date: 20050328
  Serious: Yes (Hospitalization)
  Sender: FDA-Public Use
  Company Number: USA040670913

PATIENT
  Age: 48 Year
  Sex: Male

DRUGS (13)
  1. ZYPREXA [Suspect]
     Indication: DEPRESSION
     Dosage: 10 MG DAY
     Dates: start: 20040524, end: 20040613
  2. CAPTOPRIL [Concomitant]
  3. WELLBUTRIN [Concomitant]
  4. BUSPAR [Concomitant]
  5. TRAZODONE HCL [Concomitant]
  6. ASPIRIN [Concomitant]
  7. PLAVIX [Concomitant]
  8. NEXIUM [Concomitant]
  9. LIPITOR [Concomitant]
  10. FLEXERIL [Concomitant]
  11. VICODIN [Concomitant]
  12. PHENERGAN [Concomitant]
  13. MECLIZINE [Concomitant]

REACTIONS (2)
  - BLOOD PRESSURE ORTHOSTATIC [None]
  - FEELING ABNORMAL [None]
